FAERS Safety Report 7243875-3 (Version None)
Quarter: 2011Q1

REPORT INFORMATION
  Report Type: 
  Country: None (occurrence: None)
  Receive Date: 20110125
  Receipt Date: 20110119
  Transmission Date: 20110831
  Serious: Yes (Hospitalization)
  Sender: FDA-Public Use
  Company Number: A0907384A

PATIENT
  Age: 74 Year
  Sex: Female

DRUGS (3)
  1. GLUCOTROL [Concomitant]
  2. TIMOPTIC [Concomitant]
  3. AVANDIA [Suspect]
     Route: 065

REACTIONS (2)
  - CEREBROVASCULAR ACCIDENT [None]
  - MYOCARDIAL INFARCTION [None]
